FAERS Safety Report 10208921 (Version 2)
Quarter: 2014Q3

REPORT INFORMATION
  Report Type: Spontaneous
  Country: GB (occurrence: GB)
  Receive Date: 20140530
  Receipt Date: 20140702
  Transmission Date: 20150326
  Serious: Yes (Other)
  Sender: FDA-Public Use
  Company Number: PHHY2014GB065041

PATIENT
  Age: 72 Year
  Sex: Female

DRUGS (2)
  1. CEFALEXIN [Concomitant]
     Active Substance: CEPHALEXIN
     Indication: URINARY TRACT INFECTION
     Dosage: 125 MG, UNK
  2. AMLODIPINE [Suspect]
     Active Substance: AMLODIPINE BESYLATE
     Indication: HYPERTENSION
     Route: 048
     Dates: start: 20140203, end: 20140303

REACTIONS (5)
  - Ocular hyperaemia [Not Recovered/Not Resolved]
  - Eyelid oedema [Unknown]
  - Local swelling [Unknown]
  - Paraesthesia [Not Recovered/Not Resolved]
  - Blepharitis [Recovered/Resolved with Sequelae]

NARRATIVE: CASE EVENT DATE: 20140223
